FAERS Safety Report 14568760 (Version 1)
Quarter: 2018Q1

REPORT INFORMATION
  Report Type: Spontaneous
  Country: TR (occurrence: TR)
  Receive Date: 20180223
  Receipt Date: 20180223
  Transmission Date: 20180509
  Serious: Yes (Life-Threatening, Other)
  Sender: FDA-Public Use
  Company Number: TR-SA-2018SA039964

PATIENT
  Age: 28 Day
  Sex: Male
  Weight: 3.8 kg

DRUGS (8)
  1. GENTAMICIN. [Suspect]
     Active Substance: GENTAMICIN
     Indication: PNEUMONIA
     Route: 065
  2. TEICOPLANIN [Suspect]
     Active Substance: TEICOPLANIN
     Indication: PNEUMONIA
     Route: 065
  3. AMPICILLIN [Suspect]
     Active Substance: AMPICILLIN
     Indication: PNEUMONIA
     Route: 065
  4. BUDESONIDE. [Concomitant]
     Active Substance: BUDESONIDE
     Indication: RHONCHI
  5. BUDESONIDE. [Concomitant]
     Active Substance: BUDESONIDE
     Indication: RALES
  6. SALBUTAMOL [Concomitant]
     Active Substance: ALBUTEROL
     Indication: RALES
  7. SALBUTAMOL [Concomitant]
     Active Substance: ALBUTEROL
     Indication: RHONCHI
  8. CEFOTAXIME SODIUM [Suspect]
     Active Substance: CEFOTAXIME SODIUM
     Indication: PNEUMONIA
     Route: 065

REACTIONS (2)
  - Drug ineffective [Unknown]
  - Systemic candida [Recovered/Resolved]
